FAERS Safety Report 8932484 (Version 1)
Quarter: 2012Q4

REPORT INFORMATION
  Report Type: Spontaneous
  Country: GB (occurrence: None)
  Receive Date: 20121119
  Receipt Date: 20121119
  Transmission Date: 20130627
  Serious: Yes (Other)
  Sender: FDA-Public Use
  Company Number: 2012283686

PATIENT
  Age: 50 Year
  Sex: Female

DRUGS (2)
  1. FRAGMIN (DALTEPARIN SODIUM) SOLUTION FOR INJECTION [Suspect]
     Indication: VENOUS THROMBOEMBOLISM
  2. FRAGMIN (DALTEPARIN SODIUM) SOLUTION FOR INJECTION [Suspect]
     Indication: VENOUS THROMBOEMBOLISM

REACTIONS (2)
  - Embolism venous [None]
  - Weight decreased [None]
